FAERS Safety Report 7199412-5 (Version None)
Quarter: 2010Q4

REPORT INFORMATION
  Report Type: 
  Country: None (occurrence: None)
  Receive Date: 20101228
  Receipt Date: 20101221
  Transmission Date: 20110411
  Serious: Yes (Other)
  Sender: FDA-Public Use
  Company Number: HU-PFIZER INC-2010174089

PATIENT
  Age: 62 Year
  Sex: Female

DRUGS (2)
  1. ATORVASTATIN CALCIUM [Suspect]
     Dosage: UNK
  2. PERINDOPRIL [Suspect]
     Dosage: UNK

REACTIONS (3)
  - ANGIOEDEMA [None]
  - COUGH [None]
  - DRUG INTOLERANCE [None]
